FAERS Safety Report 19810154 (Version 1)
Quarter: 2021Q3

REPORT INFORMATION
  Report Type: Spontaneous
  Country: US (occurrence: US)
  Receive Date: 20210909
  Receipt Date: 20210909
  Transmission Date: 20211014
  Serious: Yes (Other)
  Sender: FDA-Public Use
  Company Number: US-009507513-2109USA001810

PATIENT
  Sex: Female
  Weight: 93.42 kg

DRUGS (12)
  1. CHROMIUM PICOLINATE [Concomitant]
     Active Substance: CHROMIUM PICOLINATE
     Dosage: UNK
  2. ELIQUIS [Concomitant]
     Active Substance: APIXABAN
  3. CINNAMON [CINNAMOMUM VERUM] [Concomitant]
     Dosage: UNK
  4. PIOGLITAZONE HCL [Concomitant]
     Active Substance: PIOGLITAZONE
     Dosage: UNK
  5. LENVATINIB MESYLATE [Suspect]
     Active Substance: LENVATINIB MESYLATE
     Indication: ENDOMETRIAL CANCER
     Dosage: 10 MILLIGRAM, ONCE DAILY
     Route: 048
     Dates: start: 20210212
  6. NAILS, HAIR + SKIN [Concomitant]
     Dosage: UNK
  7. MULTI?VIT [Concomitant]
     Active Substance: VITAMINS
     Dosage: UNK
  8. ALTACE [Concomitant]
     Active Substance: RAMIPRIL
     Dosage: UNK
  9. THE MAGIC BULLET [Concomitant]
     Active Substance: BISACODYL
     Dosage: UNK
  10. KEYTRUDA [Suspect]
     Active Substance: PEMBROLIZUMAB
     Dosage: UNK
  11. LEVOTHYROXINE. [Concomitant]
     Active Substance: LEVOTHYROXINE
     Dosage: UNK
  12. VITAMIN D3 [Concomitant]
     Active Substance: CHOLECALCIFEROL
     Dosage: UNK

REACTIONS (5)
  - Thyroid disorder [Unknown]
  - Rash [Unknown]
  - Nephrostomy [Unknown]
  - Fatigue [Unknown]
  - Middle insomnia [Unknown]
